FAERS Safety Report 17819282 (Version 2)
Quarter: 2020Q2

REPORT INFORMATION
  Report Type: Spontaneous
  Country: FI (occurrence: FI)
  Receive Date: 20200523
  Receipt Date: 20200623
  Transmission Date: 20200714
  Serious: Yes (Other)
  Sender: FDA-Public Use
  Company Number: NVSC2020FI140455

PATIENT

DRUGS (22)
  1. PREDNISONE. [Suspect]
     Active Substance: PREDNISONE
     Indication: NERVOUS SYSTEM DISORDER PROPHYLAXIS
  2. METHOTREXATE. [Suspect]
     Active Substance: METHOTREXATE
     Indication: DIFFUSE LARGE B-CELL LYMPHOMA
     Dosage: 3 G/M2
     Route: 065
  3. METHOTREXATE. [Suspect]
     Active Substance: METHOTREXATE
     Indication: NERVOUS SYSTEM DISORDER PROPHYLAXIS
     Dosage: HIGH DOSE FOR 3 H ON DAY 2
     Route: 041
  4. METHOTREXATE. [Suspect]
     Active Substance: METHOTREXATE
     Dosage: UNK 3 H
     Route: 041
  5. CYCLOPHOSPHAMIDE. [Suspect]
     Active Substance: CYCLOPHOSPHAMIDE
     Indication: DIFFUSE LARGE B-CELL LYMPHOMA
     Dosage: 750 MG/M2
     Route: 065
  6. DEXAMETHASONE. [Suspect]
     Active Substance: DEXAMETHASONE
     Indication: DIFFUSE LARGE B-CELL LYMPHOMA
     Dosage: 10 MG X 2 FOR 5 DAYS
     Route: 065
  7. CYCLOPHOSPHAMIDE. [Suspect]
     Active Substance: CYCLOPHOSPHAMIDE
     Indication: NERVOUS SYSTEM DISORDER PROPHYLAXIS
  8. DOXORUBICIN [Suspect]
     Active Substance: DOXORUBICIN
     Indication: NERVOUS SYSTEM DISORDER PROPHYLAXIS
  9. RITUXIMAB. [Suspect]
     Active Substance: RITUXIMAB
     Indication: DIFFUSE LARGE B-CELL LYMPHOMA
     Dosage: 375 MG/M2
     Route: 065
  10. DEXAMETHASONE. [Suspect]
     Active Substance: DEXAMETHASONE
     Indication: NERVOUS SYSTEM DISORDER PROPHYLAXIS
  11. VINCRISTINE [Suspect]
     Active Substance: VINCRISTINE
     Indication: NERVOUS SYSTEM DISORDER PROPHYLAXIS
  12. PREDNISONE. [Suspect]
     Active Substance: PREDNISONE
     Indication: DIFFUSE LARGE B-CELL LYMPHOMA
     Dosage: 100 MG
     Route: 065
  13. VINCRISTINE [Suspect]
     Active Substance: VINCRISTINE
     Indication: DIFFUSE LARGE B-CELL LYMPHOMA
     Dosage: 1 MG
     Route: 065
  14. DOXORUBICIN [Suspect]
     Active Substance: DOXORUBICIN
     Indication: DIFFUSE LARGE B-CELL LYMPHOMA
     Dosage: 50 MG/M2
     Route: 065
  15. ETOPOSIDE. [Suspect]
     Active Substance: ETOPOSIDE
     Indication: DIFFUSE LARGE B-CELL LYMPHOMA
     Dosage: 100 MG/M2
     Route: 065
  16. DEPOCYTE [Suspect]
     Active Substance: CYTARABINE
     Indication: NERVOUS SYSTEM DISORDER PROPHYLAXIS
  17. PEGFILGRASTIM [Concomitant]
     Active Substance: PEGFILGRASTIM
     Indication: PRODUCT USED FOR UNKNOWN INDICATION
     Route: 065
  18. RITUXIMAB. [Suspect]
     Active Substance: RITUXIMAB
     Indication: NERVOUS SYSTEM DISORDER PROPHYLAXIS
  19. METHOTREXATE. [Suspect]
     Active Substance: METHOTREXATE
     Dosage: LESS THAN THAN 1 MICROM/L AT 42H
     Route: 065
  20. TRIMETOPRIM SULFAMETOXAZOL [Concomitant]
     Active Substance: SULFAMETHOXAZOLE\TRIMETHOPRIM
     Indication: ANTIFUNGAL PROPHYLAXIS
     Route: 065
  21. ETOPOSIDE. [Suspect]
     Active Substance: ETOPOSIDE
     Indication: NERVOUS SYSTEM DISORDER PROPHYLAXIS
  22. DEPOCYTE [Suspect]
     Active Substance: CYTARABINE
     Indication: DIFFUSE LARGE B-CELL LYMPHOMA
     Dosage: 50 MG
     Route: 037

REACTIONS (1)
  - Multiple organ dysfunction syndrome [Unknown]
